FAERS Safety Report 10601206 (Version 3)
Quarter: 2014Q4

REPORT INFORMATION
  Report Type: Spontaneous
  Country: GB (occurrence: GB)
  Receive Date: 20141124
  Receipt Date: 20141217
  Transmission Date: 20150529
  Serious: Yes (Disabling)
  Sender: FDA-Public Use
  Company Number: GB-RANBAXY-2014RR-88066

PATIENT
  Age: 47 Year
  Sex: Male

DRUGS (1)
  1. SIMVASTATIN. [Suspect]
     Active Substance: SIMVASTATIN
     Indication: BLOOD CHOLESTEROL INCREASED
     Dosage: THE CHANGED DOSE(EXACT DOSE UNSPECIFIED)
     Route: 048

REACTIONS (15)
  - Quality of life decreased [Unknown]
  - Myalgia [Unknown]
  - Asthenia [Unknown]
  - Frustration [Unknown]
  - Self esteem decreased [Unknown]
  - Headache [Unknown]
  - Constipation [Unknown]
  - Tenderness [Unknown]
  - Balance disorder [Unknown]
  - Social avoidant behaviour [Unknown]
  - Drug ineffective [Unknown]
  - Psychiatric symptom [Unknown]
  - Social problem [Unknown]
  - Fatigue [Unknown]
  - Activities of daily living impaired [Unknown]
